FAERS Safety Report 6719091-8 (Version None)
Quarter: 2010Q2

REPORT INFORMATION
  Report Type: 
  Country: None (occurrence: None)
  Receive Date: 20100507
  Receipt Date: 20100421
  Transmission Date: 20101027
  Serious: Yes (Hospitalization)
  Sender: FDA-Public Use
  Company Number: DSA_43022_2010

PATIENT
  Sex: Female

DRUGS (5)
  1. XENAZINE [Suspect]
     Indication: DRUG USE FOR UNKNOWN INDICATION
     Dosage: DF;
     Dates: start: 20100401, end: 20100401
  2. GLUCOPHAGE [Concomitant]
  3. GLUCOTROL [Concomitant]
  4. ASPIRIN [Concomitant]
  5. EYE DROPS [Concomitant]

REACTIONS (4)
  - ARTHRALGIA [None]
  - HYPERSENSITIVITY [None]
  - PAIN [None]
  - PAIN IN EXTREMITY [None]
